FAERS Safety Report 16931226 (Version 2)
Quarter: 2020Q2

REPORT INFORMATION
  Report Type: Report from Study
  Country: IT (occurrence: IT)
  Receive Date: 20191017
  Receipt Date: 20200508
  Transmission Date: 20200713
  Serious: Yes (Hospitalization)
  Sender: FDA-Public Use
  Company Number: IT-ELI_LILLY_AND_COMPANY-IT201910004007

PATIENT
  Age: 69 Year
  Sex: Female

DRUGS (1)
  1. OLANZAPINE. [Suspect]
     Active Substance: OLANZAPINE
     Indication: MENTAL DISORDER
     Dosage: 100 MG, SINGLE
     Route: 030
     Dates: start: 20190912, end: 20190912

REACTIONS (5)
  - Depressed level of consciousness [Recovering/Resolving]
  - Confusional state [Recovering/Resolving]
  - Hyperthermia [Recovering/Resolving]
  - Sopor [Recovering/Resolving]
  - Muscle rigidity [Recovering/Resolving]

NARRATIVE: CASE EVENT DATE: 20190912
